FAERS Safety Report 10466347 (Version 1)
Quarter: 2014Q3

REPORT INFORMATION
  Report Type: Spontaneous
  Country: US (occurrence: None)
  Receive Date: 20140919
  Receipt Date: 20140919
  Transmission Date: 20150326
  Serious: Yes (Hospitalization)
  Sender: FDA-Public Use
  Company Number: None

PATIENT
  Age: 77 Year
  Sex: Female
  Weight: 53.5 kg

DRUGS (12)
  1. CENTRUM SILVER [Concomitant]
     Active Substance: VITAMINS
  2. ALEVE [Suspect]
     Active Substance: NAPROXEN SODIUM
     Indication: ARTHRITIS
     Dosage: 1 TABLED?BID?ORAL?CHRONIC
     Route: 048
  3. LUMIGAN [Concomitant]
     Active Substance: BIMATOPROST
  4. MEVACOR [Concomitant]
     Active Substance: LOVASTATIN
  5. ACETAMINOPHEN. [Concomitant]
     Active Substance: ACETAMINOPHEN
  6. ECOTRIN [Suspect]
     Active Substance: ASPIRIN
     Indication: CARDIOVASCULAR DISORDER
     Dosage: 1 PILL ?QD?ORAL?CHRONIC
     Route: 048
  7. FLONASE [Concomitant]
     Active Substance: FLUTICASONE PROPIONATE
  8. STELAZINE [Concomitant]
     Active Substance: TRIFLUOPERAZINE HYDROCHLORIDE
  9. OS-CAL [Concomitant]
  10. ZYRTEC [Concomitant]
     Active Substance: CETIRIZINE HYDROCHLORIDE
  11. ZIAC [Concomitant]
     Active Substance: BISOPROLOL FUMARATE\HYDROCHLOROTHIAZIDE
  12. FISH OIL-OMEGA-3 [Concomitant]

REACTIONS (4)
  - Duodenal ulcer [None]
  - Asthenia [None]
  - Dizziness [None]
  - Faeces discoloured [None]

NARRATIVE: CASE EVENT DATE: 20140915
